FAERS Safety Report 13386467 (Version 6)
Quarter: 2017Q2

REPORT INFORMATION
  Report Type: Spontaneous
  Country: US (occurrence: US)
  Receive Date: 20170330
  Receipt Date: 20170602
  Transmission Date: 20170830
  Serious: Yes (Hospitalization, Other)
  Sender: FDA-Public Use
  Company Number: US-ALEXION-A201702885

PATIENT
  Sex: Female

DRUGS (1)
  1. SOLIRIS [Suspect]
     Active Substance: ECULIZUMAB
     Indication: PAROXYSMAL NOCTURNAL HAEMOGLOBINURIA
     Dosage: 1200 MG, Q2W
     Route: 042

REACTIONS (9)
  - Haemolysis [Unknown]
  - Platelet count abnormal [Unknown]
  - Fungal infection [Unknown]
  - Nephrolithiasis [Recovered/Resolved]
  - Liver function test abnormal [Unknown]
  - Portal vein thrombosis [Unknown]
  - Pyrexia [Unknown]
  - Incorrect dose administered [Unknown]
  - Escherichia sepsis [Unknown]

NARRATIVE: CASE EVENT DATE: 20170315
